FAERS Safety Report 13196115 (Version 1)
Quarter: 2017Q1

REPORT INFORMATION
  Report Type: Spontaneous
  Country: IT (occurrence: IT)
  Receive Date: 20170208
  Receipt Date: 20170208
  Transmission Date: 20170428
  Serious: Yes (Other)
  Sender: FDA-Public Use
  Company Number: IT-AUROBINDO-AUR-APL-2017-29149

PATIENT
  Age: 81 Year
  Sex: Female

DRUGS (1)
  1. AMOXICILLIN. [Suspect]
     Active Substance: AMOXICILLIN
     Indication: INFECTION
     Dosage: 2 DF, DAILY
     Route: 048
     Dates: start: 20150928, end: 20151003

REACTIONS (4)
  - Pyrexia [Recovering/Resolving]
  - Rash generalised [Recovering/Resolving]
  - Pruritus generalised [Recovering/Resolving]
  - Dyspnoea [Recovering/Resolving]

NARRATIVE: CASE EVENT DATE: 20151001
